FAERS Safety Report 7584215-X (Version None)
Quarter: 2011Q2

REPORT INFORMATION
  Report Type: 
  Country: None (occurrence: None)
  Receive Date: 20110531
  Receipt Date: 20110207
  Transmission Date: 20111010
  Serious: Yes (Other)
  Sender: FDA-Public Use
  Company Number: US-000926

PATIENT
  Age: 65 Year
  Sex: Female

DRUGS (2)
  1. FLECAINIDE ACETATE [Concomitant]
  2. TRAZODONE HCL [Suspect]
     Indication: DEPRESSION
     Dosage: (50 MG QD, AT BEDTIME ORAL)
     Route: 048

REACTIONS (1)
  - ELECTROCARDIOGRAM QT INTERVAL [None]
